FAERS Safety Report 8506399-9 (Version None)
Quarter: 2012Q3

REPORT INFORMATION
  Report Type: 
  Country: None (occurrence: None)
  Receive Date: 20120712
  Receipt Date: 20120711
  Transmission Date: 20120928
  Serious: Yes (Other)
  Sender: FDA-Public Use
  Company Number: US-ROCHE-788464

PATIENT
  Sex: Male
  Weight: 72.64 kg

DRUGS (3)
  1. ACCUTANE [Suspect]
     Dates: start: 19950101, end: 19960101
  2. ACCUTANE [Suspect]
     Indication: ACNE
     Route: 065
     Dates: start: 19910101, end: 19940101
  3. ACCUTANE [Suspect]
     Route: 065
     Dates: start: 19930101, end: 19940101

REACTIONS (5)
  - EMOTIONAL DISTRESS [None]
  - ANXIETY [None]
  - COLONIC POLYP [None]
  - COLITIS ULCERATIVE [None]
  - INFLAMMATORY BOWEL DISEASE [None]
